FAERS Safety Report 6913949-2 (Version None)
Quarter: 2010Q3

REPORT INFORMATION
  Report Type: 
  Country: None (occurrence: None)
  Receive Date: 20100809
  Receipt Date: 20100730
  Transmission Date: 20110219
  Serious: Yes (Hospitalization)
  Sender: FDA-Public Use
  Company Number: JP-BRISTOL-MYERS SQUIBB COMPANY-15203920

PATIENT
  Age: 43 Year
  Sex: Male
  Weight: 73 kg

DRUGS (7)
  1. ERBITUX [Suspect]
     Indication: RECTAL CANCER
     Dosage: 8APR10:250 MG/M2 RECENT DOSE:24JUN10:470MG
     Route: 041
     Dates: start: 20100408, end: 20100624
  2. OXYCONTIN [Concomitant]
     Dosage: 5MGX3 TABS
     Route: 048
  3. KYTRIL [Concomitant]
     Dosage: 1MGX2 TABS
     Route: 048
  4. LOXONIN [Concomitant]
     Dosage: 1DF:60MGX1 TAB
     Route: 048
  5. SELBEX [Concomitant]
     Dosage: 50MGX1TAB
     Route: 048
  6. GABAPEN [Concomitant]
     Dosage: 1DF:200MGX1 TAB
     Route: 048
  7. CAMPTOSAR [Concomitant]
     Indication: RECTAL CANCER
     Route: 041
     Dates: start: 20100610

REACTIONS (1)
  - PANCREATITIS ACUTE [None]
